FAERS Safety Report 8056156-5 (Version None)
Quarter: 2012Q1

REPORT INFORMATION
  Report Type: 
  Country: None (occurrence: None)
  Receive Date: 20120119
  Receipt Date: 20120109
  Transmission Date: 20120608
  Serious: Yes (Hospitalization, Other)
  Sender: FDA-Public Use
  Company Number: US-BAYER-2010-002094

PATIENT
  Age: 23 Year
  Sex: Female

DRUGS (1)
  1. YAZ [Suspect]
     Indication: PRODUCT USED FOR UNKNOWN INDICATION
     Dosage: UNK
     Dates: start: 20081101, end: 20090101

REACTIONS (7)
  - CHOLECYSTITIS CHRONIC [None]
  - ANXIETY [None]
  - FEAR [None]
  - CHOLELITHIASIS [None]
  - QUALITY OF LIFE DECREASED [None]
  - PAIN [None]
  - ANHEDONIA [None]
